FAERS Safety Report 16596200 (Version 1)
Quarter: 2019Q3

REPORT INFORMATION
  Report Type: Spontaneous
  Country: US (occurrence: US)
  Receive Date: 20190718
  Receipt Date: 20190718
  Transmission Date: 20191004
  Serious: Yes (Life-Threatening, Hospitalization)
  Sender: FDA-Public Use
  Company Number: None

PATIENT
  Age: 68 Year
  Sex: Female
  Weight: 81 kg

DRUGS (4)
  1. SPIRULINA [Concomitant]
     Active Substance: SPIRULINA
  2. LEVITHYROXINE [Concomitant]
  3. PROBIOTICS [Concomitant]
     Active Substance: PROBIOTICS NOS
  4. NITROFURONTION [Suspect]
     Active Substance: NITROFURANTOIN
     Indication: URINARY TRACT INFECTION
     Route: 048

REACTIONS (7)
  - Pyrexia [None]
  - Ocular icterus [None]
  - Yellow skin [None]
  - Pancreatitis [None]
  - Chills [None]
  - Inflammation [None]
  - Cholecystitis [None]

NARRATIVE: CASE EVENT DATE: 20160714
